FAERS Safety Report 6980336-0 (Version None)
Quarter: 2010Q3

REPORT INFORMATION
  Report Type: 
  Country: None (occurrence: None)
  Receive Date: 20100909
  Receipt Date: 20100824
  Transmission Date: 20110219
  Serious: Yes (Other)
  Sender: FDA-Public Use
  Company Number: 2010AP001742

PATIENT
  Age: 11 Year
  Sex: Female

DRUGS (3)
  1. ONDANSETRON HYDROCHLORIDE [Suspect]
     Indication: PROPHYLAXIS OF NAUSEA AND VOMITING
     Dosage: 0.1 MG/KG
  2. DIMENHYDRINATE [Concomitant]
  3. DEXAMETHASONE [Concomitant]

REACTIONS (8)
  - PROCEDURAL NAUSEA [None]
  - PROCEDURAL VOMITING [None]
  - RESPIRATORY ACIDOSIS [None]
  - SUBMANDIBULAR MASS [None]
  - THYROGLOSSAL CYST [None]
  - THYROGLOSSAL CYST INFECTION [None]
  - VENTRICULAR EXTRASYSTOLES [None]
  - VENTRICULAR TACHYCARDIA [None]
